FAERS Safety Report 20168822 (Version 1)
Quarter: 2021Q4

REPORT INFORMATION
  Report Type: Spontaneous
  Country: US (occurrence: US)
  Receive Date: 20211210
  Receipt Date: 20211210
  Transmission Date: 20220303
  Serious: No
  Sender: FDA-Public Use
  Company Number: US-SA-SAC20211203000631

PATIENT
  Age: 58 Year
  Sex: Female

DRUGS (25)
  1. DUPIXENT [Suspect]
     Active Substance: DUPILUMAB
     Indication: Asthma
     Dosage: UNK UNK, 1X
     Route: 058
     Dates: start: 20210824, end: 20210824
  2. DUPIXENT [Suspect]
     Active Substance: DUPILUMAB
     Dosage: 300 MG, QOW
     Route: 058
     Dates: start: 2021
  3. ADVAIR HFA [Concomitant]
     Active Substance: FLUTICASONE PROPIONATE\SALMETEROL XINAFOATE
  4. ALBUTEROL [Concomitant]
     Active Substance: ALBUTEROL
  5. AZITHROMYCIN [Concomitant]
     Active Substance: AZITHROMYCIN
  6. BACTRIM [Concomitant]
     Active Substance: SULFAMETHOXAZOLE\TRIMETHOPRIM
  7. COMBIVENT [Concomitant]
     Active Substance: ALBUTEROL SULFATE\IPRATROPIUM BROMIDE
  8. CYMBALTA [Concomitant]
     Active Substance: DULOXETINE HYDROCHLORIDE
  9. DIAZEPAM [Concomitant]
     Active Substance: DIAZEPAM
  10. DILTIAZEM [Concomitant]
     Active Substance: DILTIAZEM
  11. EPIPEN [Concomitant]
     Active Substance: EPINEPHRINE
  12. FASENRA [Concomitant]
     Active Substance: BENRALIZUMAB
  13. APAP [Concomitant]
     Active Substance: ACETAMINOPHEN
  14. LIDOCAINE [Concomitant]
     Active Substance: LIDOCAINE
  15. LISINOPRIL [Concomitant]
     Active Substance: LISINOPRIL
  16. MELOXICAM [Concomitant]
     Active Substance: MELOXICAM
  17. MONTELUKAST [Concomitant]
     Active Substance: MONTELUKAST SODIUM
  18. PRAMIPEXOLE [Concomitant]
     Active Substance: PRAMIPEXOLE
  19. PREDNISONE [Concomitant]
     Active Substance: PREDNISONE
  20. SAVELLA [Concomitant]
     Active Substance: MILNACIPRAN HYDROCHLORIDE
  21. TIZANIDINE [Concomitant]
     Active Substance: TIZANIDINE
  22. XOLAIR [Concomitant]
     Active Substance: OMALIZUMAB
  23. TRIAMCINOLONE [Concomitant]
     Active Substance: TRIAMCINOLONE
  24. NITROGLYCERIN [Concomitant]
     Active Substance: NITROGLYCERIN
  25. CYCLOBENZAPRINE [Concomitant]
     Active Substance: CYCLOBENZAPRINE

REACTIONS (1)
  - Asthma [Not Recovered/Not Resolved]

NARRATIVE: CASE EVENT DATE: 20210101
